FAERS Safety Report 9462413 (Version 2)
Quarter: 2013Q3

REPORT INFORMATION
  Report Type: Spontaneous
  Country: GB (occurrence: GB)
  Receive Date: 20130816
  Receipt Date: 20130904
  Transmission Date: 20140515
  Serious: No
  Sender: FDA-Public Use
  Company Number: PHHY2013GB086460

PATIENT
  Age: 67 Year
  Sex: Male
  Weight: 91 kg

DRUGS (4)
  1. CLINDAMYCIN [Suspect]
     Indication: INFECTION
     Dosage: 150 MG, UNK
     Route: 048
     Dates: start: 20130109, end: 20130116
  2. SIMVASTATIN [Concomitant]
     Dosage: 10 MG, UNK
     Dates: start: 200301
  3. METFORMIN [Concomitant]
     Indication: DIABETES MELLITUS
     Dosage: 1 G, BID
     Dates: start: 199701
  4. SOLIFENACIN [Concomitant]
     Dosage: 10 MG, QD
     Route: 048
     Dates: start: 200901

REACTIONS (2)
  - Gynaecomastia [Recovered/Resolved]
  - Breast mass [Recovered/Resolved]
